FAERS Safety Report 19724566 (Version 2)
Quarter: 2022Q2

REPORT INFORMATION
  Report Type: Spontaneous
  Country: US (occurrence: US)
  Receive Date: 20210819
  Receipt Date: 20220502
  Transmission Date: 20220721
  Serious: No
  Sender: FDA-Public Use
  Company Number: US-PFIZER INC-202100962761

PATIENT
  Age: 58 Year
  Sex: Female

DRUGS (14)
  1. FLAGYL [Suspect]
     Active Substance: METRONIDAZOLE\METRONIDAZOLE HYDROCHLORIDE
     Dosage: UNK
  2. ERGOCALCIFEROL [Concomitant]
     Active Substance: ERGOCALCIFEROL
     Dosage: UNK
  3. CELECOXIB [Concomitant]
     Active Substance: CELECOXIB
     Dosage: UNK
  4. ORENCIA [Concomitant]
     Active Substance: ABATACEPT
     Dosage: UNK
  5. ESTRACE [Concomitant]
     Active Substance: ESTRADIOL
     Dosage: UNK
  6. ENBREL [Concomitant]
     Active Substance: ETANERCEPT
     Dosage: UNK
  7. HUMIRA [Concomitant]
     Active Substance: ADALIMUMAB
     Dosage: UNK
  8. REMICADE [Concomitant]
     Active Substance: INFLIXIMAB
     Dosage: UNK
  9. NEURONTIN [Concomitant]
     Active Substance: GABAPENTIN
     Dosage: UNK
  10. AMARYL [Concomitant]
     Active Substance: GLIMEPIRIDE
     Dosage: UNK
  11. PLAQUENIL [Concomitant]
     Active Substance: HYDROXYCHLOROQUINE SULFATE
     Dosage: UNK
  12. LOSARTAN [Concomitant]
     Active Substance: LOSARTAN
     Dosage: UNK
  13. FOLVITE [FOLIC ACID] [Concomitant]
     Dosage: UNK
  14. MELOXICAM [Concomitant]
     Active Substance: MELOXICAM
     Dosage: UNK

REACTIONS (2)
  - Nausea [Unknown]
  - Vomiting [Unknown]
